FAERS Safety Report 4589549-9 (Version None)
Quarter: 2005Q1

REPORT INFORMATION
  Report Type: 
  Country: None (occurrence: None)
  Receive Date: 20050223
  Receipt Date: 20050208
  Transmission Date: 20050727
  Serious: Yes (Other)
  Sender: FDA-Public Use
  Company Number: BE-JNJFOC-20041105807

PATIENT
  Sex: Male
  Weight: 88 kg

DRUGS (1)
  1. VERMOX [Suspect]
     Route: 049

REACTIONS (1)
  - LEUKOENCEPHALOMYELITIS [None]
